FAERS Safety Report 8959907 (Version 1)
Quarter: 2012Q4

REPORT INFORMATION
  Report Type: 
  Country: MA (occurrence: MA)
  Receive Date: 20121211
  Receipt Date: 20121211
  Transmission Date: 20130627
  Serious: Yes (Life-Threatening, Other)
  Sender: FDA-Public Use
  Company Number: MA-ROXANE LABORATORIES, INC.-2012-RO-02530RO

PATIENT
  Age: 42 Year
  Sex: Male

DRUGS (8)
  1. MYCOPHENOLATE MOFETIL [Suspect]
     Indication: RENAL TRANSPLANT
     Dosage: 2000 mg
  2. MYCOPHENOLATE MOFETIL [Suspect]
     Dosage: 1 g
  3. PREDNISONE [Suspect]
     Indication: RENAL TRANSPLANT
     Dosage: 10 mg
  4. PREDNISONE [Suspect]
     Dosage: 20 mg
  5. AZATHIOPRINE [Suspect]
     Indication: RENAL TRANSPLANT
  6. TACROLIMUS [Suspect]
     Indication: RENAL TRANSPLANT
  7. BASILIXIMAB [Suspect]
     Indication: RENAL TRANSPLANT
  8. CYCLOSPORINE [Suspect]
     Indication: RENAL TRANSPLANT

REACTIONS (5)
  - Progressive multifocal leukoencephalopathy [Recovered/Resolved]
  - Disseminated intravascular coagulation [Unknown]
  - Septic shock [Unknown]
  - Coma [Recovered/Resolved]
  - Transplant rejection [Recovered/Resolved]
